FAERS Safety Report 25078755 (Version 1)
Quarter: 2025Q1

REPORT INFORMATION
  Report Type: Spontaneous
  Country: SE (occurrence: SE)
  Receive Date: 20250314
  Receipt Date: 20250314
  Transmission Date: 20250408
  Serious: Yes (Hospitalization, Other)
  Sender: CELLTRION
  Company Number: None

PATIENT

DRUGS (3)
  1. RITUXIMAB [Suspect]
     Active Substance: RITUXIMAB
     Indication: Mantle cell lymphoma
     Dates: start: 20240619, end: 20240619
  2. ELIQUIS [Concomitant]
     Active Substance: APIXABAN
  3. LEUKERAN [Concomitant]
     Active Substance: CHLORAMBUCIL
     Dates: start: 2024

REACTIONS (3)
  - Anaemia of malignant disease [Recovering/Resolving]
  - Thrombocytopenia [Recovering/Resolving]
  - Intentional product use issue [Unknown]

NARRATIVE: CASE EVENT DATE: 20240619
